FAERS Safety Report 5968851-X (Version None)
Quarter: 2008Q4

REPORT INFORMATION
  Report Type: 
  Country: None (occurrence: None)
  Receive Date: 20081119
  Receipt Date: 20081014
  Transmission Date: 20090506
  Serious: No
  Sender: FDA-Public Use
  Company Number: WAES 0810USA02454

PATIENT
  Age: 76 Year
  Sex: Female

DRUGS (8)
  1. JANUVIA [Suspect]
     Indication: TYPE 2 DIABETES MELLITUS
     Dosage: 50 MG/DAILY/PO
     Route: 048
     Dates: start: 20080201
  2. LIPITOR [Concomitant]
  3. SYNTHROID [Concomitant]
  4. TRUSOPT [Concomitant]
  5. [THERAPY UNSPECIFIED] [Concomitant]
  6. ASCORBIC ACID [Concomitant]
  7. ATENOLOL [Suspect]
  8. ESTRADIOL [Concomitant]

REACTIONS (2)
  - BLOOD GLUCOSE INCREASED [None]
  - DRUG INEFFECTIVE [None]
